FAERS Safety Report 10028469 (Version 1)
Quarter: 2014Q1

REPORT INFORMATION
  Report Type: Spontaneous
  Country: US (occurrence: US)
  Receive Date: 20140321
  Receipt Date: 20140321
  Transmission Date: 20141002
  Serious: Yes (Hospitalization, Other)
  Sender: FDA-Public Use
  Company Number: US-BRISTOL-MYERS SQUIBB COMPANY-20475182

PATIENT
  Age: 51 Year
  Sex: Male
  Weight: 70.29 kg

DRUGS (7)
  1. COUMADIN [Suspect]
     Indication: CARDIAC DISORDER
     Route: 048
     Dates: end: 20140310
  2. LISINOPRIL [Concomitant]
  3. METOPROLOL [Concomitant]
  4. METFORMIN [Concomitant]
  5. ASS [Concomitant]
  6. SIMVASTATIN [Concomitant]
  7. DILTIAZEM HCL [Concomitant]

REACTIONS (2)
  - Hypertension [Recovered/Resolved]
  - Heart rate decreased [Recovered/Resolved]
